FAERS Safety Report 16707391 (Version 1)
Quarter: 2019Q3

REPORT INFORMATION
  Report Type: Spontaneous
  Country: NL (occurrence: NL)
  Receive Date: 20190815
  Receipt Date: 20190815
  Transmission Date: 20191004
  Serious: Yes (Other)
  Sender: FDA-Public Use
  Company Number: NL-GILEAD-2019-0423404

PATIENT
  Age: 48 Year
  Sex: Male
  Weight: 80 kg

DRUGS (2)
  1. EVIPLERA [Suspect]
     Active Substance: EMTRICITABINE\RILPIVIRINE\TENOFOVIR DISOPROXIL FUMARATE
     Indication: HIV INFECTION
     Dosage: 1 DOSE DAILY; 200/25/245 MG
     Route: 048
     Dates: start: 2009
  2. ODEFSEY [Suspect]
     Active Substance: EMTRICITABINE\RILPIVIRINE HYDROCHLORIDE\TENOFOVIR ALAFENAMIDE FUMARATE
     Indication: HIV INFECTION
     Dosage: 1 DOSE DAILY; 200/25/25 MG
     Route: 048
     Dates: start: 201804, end: 20190601

REACTIONS (7)
  - Burnout syndrome [Recovered/Resolved]
  - Panic attack [Recovered/Resolved]
  - Psychotic symptom [Recovered/Resolved]
  - Hyperventilation [Recovered/Resolved]
  - Feeling abnormal [Recovered/Resolved]
  - Sleep disorder [Recovered/Resolved]
  - Chest discomfort [Recovered/Resolved]

NARRATIVE: CASE EVENT DATE: 201902
